FAERS Safety Report 6986383-7 (Version None)
Quarter: 2010Q3

REPORT INFORMATION
  Report Type: 
  Country: None (occurrence: None)
  Receive Date: 20100910
  Receipt Date: 20100906
  Transmission Date: 20110219
  Serious: Yes (Death, Hospitalization)
  Sender: FDA-Public Use
  Company Number: 007114

PATIENT
  Sex: Male
  Weight: 80 kg

DRUGS (4)
  1. VIMPAT [Suspect]
     Indication: PARTIAL SEIZURES
     Dosage: (100 MG BID)
     Dates: start: 20091022, end: 20100116
  2. CONVULEX /00228501/ (CONVULEX) (NOT SPECIFIED) [Suspect]
     Dosage: (1500 MG BID)
  3. LAMOTRIGINE [Suspect]
     Dosage: (50 MG BID)
  4. STESOLID (STESOLID) (NOT SPECIFIED) [Suspect]
     Dosage: (IF NEEDED)

REACTIONS (6)
  - ARRHYTHMIA [None]
  - BRONCHITIS [None]
  - CARDIAC ARREST [None]
  - CARDIOMEGALY [None]
  - PULMONARY OEDEMA [None]
  - SUDDEN CARDIAC DEATH [None]
